FAERS Safety Report 6928008-2 (Version None)
Quarter: 2010Q3

REPORT INFORMATION
  Report Type: 
  Country: None (occurrence: None)
  Receive Date: 20100817
  Receipt Date: 20100810
  Transmission Date: 20110219
  Serious: Yes (Life-Threatening)
  Sender: FDA-Public Use
  Company Number: JP-BRISTOL-MYERS SQUIBB COMPANY-15236151

PATIENT

DRUGS (1)
  1. BARACLUDE [Suspect]
     Indication: HEPATITIS ACUTE
     Route: 048
     Dates: start: 20100701, end: 20100701

REACTIONS (1)
  - THROMBOTIC THROMBOCYTOPENIC PURPURA [None]
